FAERS Safety Report 19137558 (Version 3)
Quarter: 2023Q2

REPORT INFORMATION
  Report Type: Spontaneous
  Country: US (occurrence: US)
  Receive Date: 20210414
  Receipt Date: 20230418
  Transmission Date: 20230722
  Serious: Yes (Other)
  Sender: FDA-Public Use
  Company Number: US-GILEAD-2021-0524842

PATIENT
  Sex: Male
  Weight: 65.76 kg

DRUGS (22)
  1. VIREAD [Suspect]
     Active Substance: TENOFOVIR DISOPROXIL FUMARATE
     Indication: HIV infection
     Dosage: UNK
     Route: 065
     Dates: start: 2001, end: 2002
  2. TRUVADA [Suspect]
     Active Substance: EMTRICITABINE\TENOFOVIR DISOPROXIL FUMARATE
     Indication: HIV infection
     Dosage: UNK
     Route: 048
     Dates: start: 200408, end: 2017
  3. BIKTARVY [Concomitant]
     Active Substance: BICTEGRAVIR SODIUM\EMTRICITABINE\TENOFOVIR ALAFENAMIDE FUMARATE
  4. DESCOVY [Concomitant]
     Active Substance: EMTRICITABINE\TENOFOVIR ALAFENAMIDE FUMARATE
  5. CRIXIVAN [Concomitant]
     Active Substance: INDINAVIR SULFATE
  6. KALETRA [Concomitant]
     Active Substance: LOPINAVIR\RITONAVIR
  7. NORVIR [Concomitant]
     Active Substance: RITONAVIR
  8. RETROVIR [Concomitant]
     Active Substance: ZIDOVUDINE
  9. REYATAZ [Concomitant]
     Active Substance: ATAZANAVIR SULFATE
  10. TIVICAY [Concomitant]
     Active Substance: DOLUTEGRAVIR SODIUM
  11. TRIUMEQ [Concomitant]
     Active Substance: ABACAVIR SULFATE\DOLUTEGRAVIR SODIUM\LAMIVUDINE
  12. VIDEX [Concomitant]
     Active Substance: DIDANOSINE
  13. ACYCLOVIR [Concomitant]
     Active Substance: ACYCLOVIR
  14. AZT [Concomitant]
     Active Substance: ZIDOVUDINE
  15. ASTATIN [ATORVASTATIN CALCIUM] [Concomitant]
  16. BACTRIM [Concomitant]
     Active Substance: SULFAMETHOXAZOLE\TRIMETHOPRIM
  17. FINASTERIDE [Concomitant]
     Active Substance: FINASTERIDE
  18. GABAPENTIN [Concomitant]
     Active Substance: GABAPENTIN
  19. IBUPROFEN [Concomitant]
     Active Substance: IBUPROFEN
  20. PRAVASTATIN [Concomitant]
     Active Substance: PRAVASTATIN
  21. ESCITALOPRAM [Concomitant]
     Active Substance: ESCITALOPRAM OXALATE
  22. URTICA DIOICA LEAF [Concomitant]
     Active Substance: URTICA DIOICA LEAF

REACTIONS (10)
  - Chronic kidney disease [Not Recovered/Not Resolved]
  - Osteopenia [Not Recovered/Not Resolved]
  - Hypertension [Not Recovered/Not Resolved]
  - Hyperparathyroidism [Not Recovered/Not Resolved]
  - Emotional distress [Not Recovered/Not Resolved]
  - Post-traumatic stress disorder [Not Recovered/Not Resolved]
  - Anhedonia [Not Recovered/Not Resolved]
  - Pain [Not Recovered/Not Resolved]
  - Depression [Not Recovered/Not Resolved]
  - Anxiety [Not Recovered/Not Resolved]

NARRATIVE: CASE EVENT DATE: 20160101
